FAERS Safety Report 4871719-3 (Version None)
Quarter: 2005Q4

REPORT INFORMATION
  Report Type: 
  Country: None (occurrence: None)
  Receive Date: 20051230
  Receipt Date: 20051216
  Transmission Date: 20060501
  Serious: Yes (Other)
  Sender: FDA-Public Use
  Company Number: FRWYE244316DEC05

PATIENT
  Age: 40 Year
  Sex: Female

DRUGS (7)
  1. EFFEXOR [Suspect]
     Dosage: 150 MG TOTAL DAILY
     Route: 048
     Dates: start: 20050601
  2. ................ [Concomitant]
  3. .................... [Concomitant]
  4. ............... [Concomitant]
  5. ............. [Concomitant]
  6. ............ [Concomitant]
  7. .............. [Concomitant]

REACTIONS (1)
  - PROLACTIN-PRODUCING PITUITARY TUMOUR [None]
